FAERS Safety Report 18932314 (Version 2)
Quarter: 2021Q1

REPORT INFORMATION
  Report Type: Report from Study
  Country: US (occurrence: US)
  Receive Date: 20210224
  Receipt Date: 20210331
  Transmission Date: 20210420
  Serious: Yes (Hospitalization, Other)
  Sender: FDA-Public Use
  Company Number: US-GILEAD-2021-0518200

PATIENT
  Age: 46 Year
  Sex: Male

DRUGS (20)
  1. CREON [Concomitant]
     Active Substance: PANCRELIPASE AMYLASE\PANCRELIPASE LIPASE\PANCRELIPASE PROTEASE
  2. CIPROFLOXACIN. [Concomitant]
     Active Substance: CIPROFLOXACIN
  3. ACTIGALL [Concomitant]
     Active Substance: URSODIOL
  4. PULMOZYME [Concomitant]
     Active Substance: DORNASE ALFA
  5. DEXAMETHASONE;TOBRAMYCIN [Concomitant]
     Active Substance: DEXAMETHASONE\TOBRAMYCIN
  6. LEVAQUIN [Concomitant]
     Active Substance: LEVOFLOXACIN
  7. PANCRECARB [Concomitant]
  8. PROAIR HFA [Concomitant]
     Active Substance: ALBUTEROL SULFATE
  9. RELENZA [Concomitant]
     Active Substance: ZANAMIVIR
  10. HYPERSAL [Concomitant]
     Active Substance: SODIUM CHLORIDE
  11. AZTREONAM LYSINE [Suspect]
     Active Substance: AZTREONAM LYSINE
     Indication: CYSTIC FIBROSIS
     Dosage: 75 MG, TID
     Route: 065
     Dates: start: 20140626
  12. ADEKS [Concomitant]
  13. ALBUTEROL [SALBUTAMOL] [Concomitant]
     Active Substance: ALBUTEROL
  14. MULTI?VIT [Concomitant]
     Active Substance: VITAMINS
  15. TOBI [Concomitant]
     Active Substance: TOBRAMYCIN
  16. URSODIOL. [Concomitant]
     Active Substance: URSODIOL
  17. AZITHROMYCIN ANHYDROUS. [Concomitant]
     Active Substance: AZITHROMYCIN ANHYDROUS
  18. BASAGLAR [Concomitant]
     Active Substance: INSULIN GLARGINE
  19. FORMALAZ [Concomitant]
     Active Substance: FORMALDEHYDE
  20. NEOMYCIN/POLYMYXIN/GRAMICIDIN [Concomitant]
     Active Substance: GRAMICIDIN\NEOMYCIN\POLYMYXIN

REACTIONS (5)
  - Fatigue [Recovered/Resolved]
  - Haemoptysis [Recovered/Resolved]
  - Cystic fibrosis [Recovered/Resolved]
  - Dyspnoea [Recovered/Resolved]
  - Pneumonia [Recovered/Resolved]

NARRATIVE: CASE EVENT DATE: 202007
